FAERS Safety Report 15655770 (Version 1)
Quarter: 2018Q4

REPORT INFORMATION
  Report Type: Spontaneous
  Country: SE (occurrence: SE)
  Receive Date: 20181126
  Receipt Date: 20181126
  Transmission Date: 20190205
  Serious: Yes (Other)
  Sender: FDA-Public Use
  Company Number: SE-ASTRAZENECA-2018SF52451

PATIENT
  Age: 59 Year
  Sex: Male

DRUGS (14)
  1. ALVEDON [Concomitant]
     Active Substance: ACETAMINOPHEN
     Dosage: INTERMITTENT
  2. EZETROL [Concomitant]
     Active Substance: EZETIMIBE
  3. NITROLINGUAL [Concomitant]
     Active Substance: NITROGLYCERIN
     Dosage: INTERMITTENT
  4. METOPROLOL. [Concomitant]
     Active Substance: METOPROLOL
  5. STESOLID [Concomitant]
     Active Substance: DIAZEPAM
  6. FOLACIN [Concomitant]
  7. TROMBYL [Concomitant]
     Active Substance: ASPIRIN
  8. CILAXORAL [Concomitant]
     Active Substance: SODIUM PICOSULFATE
     Dosage: INTERMITTENT
  9. PARAFLEX [Concomitant]
     Active Substance: CHLORZOXAZONE
     Dosage: INTERMITTENT
  10. ATORVASTATIN [Concomitant]
     Active Substance: ATORVASTATIN
  11. BRILIQUE [Suspect]
     Active Substance: TICAGRELOR
     Indication: STENT PLACEMENT
     Route: 048
     Dates: start: 20170912, end: 20171002
  12. TREO COMP [Concomitant]
  13. EMGESAN [Concomitant]
     Active Substance: MAGNESIUM HYDROXIDE
     Dosage: INTERMITTENT
  14. FLUNITRAZEPAM [Concomitant]
     Active Substance: FLUNITRAZEPAM

REACTIONS (1)
  - Periodontitis [Not Recovered/Not Resolved]

NARRATIVE: CASE EVENT DATE: 20170926
